FAERS Safety Report 25501730 (Version 2)
Quarter: 2025Q3

REPORT INFORMATION
  Report Type: Spontaneous
  Country: JP (occurrence: JP)
  Receive Date: 20250702
  Receipt Date: 20250731
  Transmission Date: 20251020
  Serious: Yes (Other)
  Sender: ASTELLAS
  Company Number: JP-ASTELLAS-2025-AER-035441

PATIENT
  Age: 84 Year
  Sex: Male

DRUGS (3)
  1. ENFORTUMAB VEDOTIN [Suspect]
     Active Substance: ENFORTUMAB VEDOTIN
     Indication: Bladder cancer
     Route: 065
  2. DURVALUMAB [Concomitant]
     Active Substance: DURVALUMAB
     Indication: Bladder cancer
     Route: 065
  3. TREMELIMUMAB [Concomitant]
     Active Substance: TREMELIMUMAB
     Indication: Bladder cancer
     Route: 065

REACTIONS (1)
  - Skin disorder [Recovering/Resolving]
